FAERS Safety Report 7456218-7 (Version None)
Quarter: 2011Q2

REPORT INFORMATION
  Report Type: 
  Country: None (occurrence: None)
  Receive Date: 20110503
  Receipt Date: 20110429
  Transmission Date: 20111010
  Serious: Yes (Life-Threatening, Hospitalization)
  Sender: FDA-Public Use
  Company Number: US-ASTRAZENECA-2011SE11022

PATIENT
  Age: 58 Year
  Sex: Male
  Weight: 83.9 kg

DRUGS (3)
  1. SEROQUEL XR [Suspect]
     Indication: BIPOLAR DISORDER
     Route: 048
     Dates: start: 20090101
  2. EFFEXOR [Concomitant]
     Indication: BIPOLAR DISORDER
  3. DESERYL [Concomitant]
     Indication: BIPOLAR DISORDER

REACTIONS (5)
  - RADICAL PROSTATECTOMY [None]
  - ATTENTION DEFICIT/HYPERACTIVITY DISORDER [None]
  - PROSTATE CANCER METASTATIC [None]
  - SUICIDE ATTEMPT [None]
  - COMA [None]
